FAERS Safety Report 18010368 (Version 1)
Quarter: 2020Q3

REPORT INFORMATION
  Report Type: Spontaneous
  Country: RS (occurrence: RS)
  Receive Date: 20200710
  Receipt Date: 20200710
  Transmission Date: 20201103
  Serious: Yes (Life-Threatening)
  Sender: FDA-Public Use
  Company Number: RS-ROCHE-2638301

PATIENT
  Sex: Female
  Weight: 66 kg

DRUGS (1)
  1. MABTHERA [Suspect]
     Active Substance: RITUXIMAB
     Indication: RHEUMATOID ARTHRITIS
     Dosage: 500 MG; 2 G EVERY 6 MONTHS
     Route: 041
     Dates: start: 20160721, end: 20200630

REACTIONS (3)
  - Bronchospasm [Recovered/Resolved]
  - Dyspnoea [Unknown]
  - Choking [Recovered/Resolved]

NARRATIVE: CASE EVENT DATE: 20200630
